FAERS Safety Report 8055717-7 (Version None)
Quarter: 2011Q4

REPORT INFORMATION
  Report Type: 
  Country: None (occurrence: None)
  Receive Date: 20111219
  Receipt Date: 20110303
  Transmission Date: 20120403
  Serious: Yes (Hospitalization, Other)
  Sender: FDA-Public Use
  Company Number: WAES 1103USA00609

PATIENT
  Age: 71 Year
  Sex: Male
  Weight: 124.7392 kg

DRUGS (19)
  1. JANUVIA [Suspect]
     Indication: TYPE 2 DIABETES MELLITUS
     Dosage: 50 MG/DAILY/PO
     Route: 048
     Dates: start: 20100824, end: 20110104
  2. FINASTERIDE [Concomitant]
  3. OMEGA-3 MARINE TRIGLYCERIDES [Concomitant]
  4. ZEMPLAR [Concomitant]
  5. ZETIA [Concomitant]
  6. BETHANECHOL CHLORIDE [Concomitant]
  7. TERAZOSIN HCL [Concomitant]
  8. NOVOLOG [Concomitant]
  9. MULTIVITAMIN [Concomitant]
  10. VYTORIN [Concomitant]
  11. ASPIRIN [Concomitant]
  12. LISINOPRIL [Concomitant]
  13. METOPROLOL [Concomitant]
  14. VITAMINS (UNSPECIFIED) [Concomitant]
  15. LEVOXYL [Concomitant]
  16. NEXIUM [Concomitant]
  17. BUMEX [Concomitant]
  18. INSULIN, ISOPHANE [Concomitant]
  19. TRAMADOL HCL [Concomitant]

REACTIONS (1)
  - PANCREATITIS [None]
